FAERS Safety Report 6642152-9 (Version None)
Quarter: 2010Q1

REPORT INFORMATION
  Report Type: 
  Country: None (occurrence: None)
  Receive Date: 20100319
  Receipt Date: 20100310
  Transmission Date: 20100710
  Serious: Yes (Hospitalization)
  Sender: FDA-Public Use
  Company Number: US-BRISTOL-MYERS SQUIBB COMPANY-15011794

PATIENT
  Age: 37 Year
  Sex: Female
  Weight: 95 kg

DRUGS (3)
  1. ABILIFY [Suspect]
     Indication: BIPOLAR DISORDER
     Dosage: 1 DF = 1 TABLE SPOON
     Route: 048
     Dates: start: 20070401
  2. ABILIFY [Suspect]
     Indication: SOCIAL PHOBIA
     Dosage: 1 DF = 1 TABLE SPOON
     Route: 048
     Dates: start: 20070401
  3. ABILIFY [Suspect]
     Indication: PERSONALITY DISORDER
     Dosage: 1 DF = 1 TABLE SPOON
     Route: 048
     Dates: start: 20070401

REACTIONS (3)
  - AMNESIA [None]
  - CARDIOMEGALY [None]
  - CHEST PAIN [None]
